FAERS Safety Report 7171927-5 (Version None)
Quarter: 2010Q4

REPORT INFORMATION
  Report Type: 
  Country: None (occurrence: None)
  Receive Date: 20101217
  Receipt Date: 20101208
  Transmission Date: 20110411
  Serious: Yes (Hospitalization)
  Sender: FDA-Public Use
  Company Number: US-MERCK-1012USA02386

PATIENT
  Sex: Female

DRUGS (4)
  1. JANUVIA [Suspect]
     Indication: TYPE 2 DIABETES MELLITUS
     Route: 048
     Dates: end: 20100501
  2. METFORMIN [Concomitant]
     Route: 065
  3. GLIBENCLAMID [Concomitant]
     Route: 065
  4. TEGRETOL [Concomitant]
     Route: 065

REACTIONS (3)
  - PANCREATITIS [None]
  - PNEUMONIA [None]
  - SINUSITIS [None]
